FAERS Safety Report 6750435-7 (Version None)
Quarter: 2010Q2

REPORT INFORMATION
  Report Type: 
  Country: None (occurrence: None)
  Receive Date: 20100527
  Receipt Date: 20100513
  Transmission Date: 20101027
  Serious: Yes (Hospitalization)
  Sender: FDA-Public Use
  Company Number: AMAG201000238

PATIENT
  Age: 77 Year
  Sex: Female
  Weight: 45.5 kg

DRUGS (9)
  1. FERAHEME [Suspect]
     Indication: ANAEMIA
     Dosage: 5 ML, SINGLE, INTRAVENOUS
     Route: 042
     Dates: start: 20100511, end: 20100511
  2. ALBUTEROL (SALBUTAMOL SULFATE) [Concomitant]
  3. ATROVENT [Concomitant]
  4. COREG [Concomitant]
  5. IRON (IRON) [Concomitant]
  6. HUMULIN (INSULIN HUMAN) [Concomitant]
  7. PROVIGIL [Concomitant]
  8. PROTONIX [Concomitant]
  9. NORVASC [Concomitant]

REACTIONS (16)
  - ACUTE PULMONARY OEDEMA [None]
  - ACUTE RESPIRATORY FAILURE [None]
  - CARDIAC FAILURE CONGESTIVE [None]
  - CONFUSIONAL STATE [None]
  - ERYTHEMA [None]
  - EYE ROLLING [None]
  - FLUID OVERLOAD [None]
  - FLUSHING [None]
  - HYPERGLYCAEMIA [None]
  - HYPERSENSITIVITY [None]
  - HYPOTENSION [None]
  - OXYGEN SATURATION DECREASED [None]
  - PURPURA [None]
  - TACHYCARDIA [None]
  - TRANSFUSION REACTION [None]
  - UNRESPONSIVE TO STIMULI [None]
